FAERS Safety Report 4339587-6 (Version None)
Quarter: 2004Q1

REPORT INFORMATION
  Report Type: 
  Country: None (occurrence: None)
  Receive Date: 20040329
  Receipt Date: 20040220
  Transmission Date: 20041129
  Serious: No
  Sender: FDA-Public Use
  Company Number: 04P-163-0251038-00

PATIENT
  Age: 62 Year
  Sex: Female
  Weight: 61.6892 kg

DRUGS (5)
  1. HUMIRA [Suspect]
     Indication: RHEUMATOID ARTHRITIS
     Dosage: 40 MG, 1 IN 2 WK, SUBCUTANEOUS
     Route: 058
     Dates: start: 20031201
  2. LOSARTAN POTASSIUM [Concomitant]
  3. ESTRADIOL [Concomitant]
  4. MULTI-VITAMINS [Concomitant]
  5. PREDNISONE [Concomitant]

REACTIONS (3)
  - COUGH [None]
  - HEADACHE [None]
  - NASAL CONGESTION [None]
